FAERS Safety Report 7555619-6 (Version None)
Quarter: 2011Q2

REPORT INFORMATION
  Report Type: 
  Country: None (occurrence: None)
  Receive Date: 20110617
  Receipt Date: 20080326
  Transmission Date: 20111010
  Serious: Yes (Other)
  Sender: FDA-Public Use
  Company Number: PHHY2008US03845

PATIENT
  Age: 87 Year
  Sex: Male
  Weight: 82 kg

DRUGS (2)
  1. EXJADE [Suspect]
     Dosage: 1750 MG, QD
     Dates: start: 20080324, end: 20080325
  2. EXJADE [Suspect]
     Indication: IRON OVERLOAD
     Dosage: 1750 MG, QD
     Route: 048
     Dates: start: 20080321, end: 20080322

REACTIONS (1)
  - BLINDNESS TRANSIENT [None]
